FAERS Safety Report 5835885-5 (Version None)
Quarter: 2008Q3

REPORT INFORMATION
  Report Type: 
  Country: None (occurrence: None)
  Receive Date: 20080730
  Receipt Date: 20080111
  Transmission Date: 20090109
  Serious: Yes (Other)
  Sender: FDA-Public Use
  Company Number: 44212

PATIENT
  Age: 59 Year
  Sex: Female
  Weight: 62.5964 kg

DRUGS (2)
  1. PACLITAXEL [Suspect]
     Indication: LUNG NEOPLASM MALIGNANT
     Dosage: 136MG QW IV
     Route: 042
     Dates: start: 20071221, end: 20071228
  2. PACLITAXEL [Suspect]
     Indication: LUNG NEOPLASM MALIGNANT
     Dosage: 136MG QW IV
     Route: 042
     Dates: start: 20080104, end: 20080111

REACTIONS (3)
  - COUGH [None]
  - DYSPNOEA [None]
  - WHEEZING [None]
